FAERS Safety Report 8280839-5 (Version None)
Quarter: 2012Q2

REPORT INFORMATION
  Report Type: 
  Country: None (occurrence: None)
  Receive Date: 20120412
  Receipt Date: 20120406
  Transmission Date: 20120825
  Serious: Yes (Disabling)
  Sender: FDA-Public Use
  Company Number: US-ABBOTT-12P-163-0922546-00

PATIENT
  Sex: Male
  Weight: 86.26 kg

DRUGS (3)
  1. HUMIRA [Suspect]
  2. HUMIRA [Suspect]
     Indication: RHEUMATOID ARTHRITIS
     Dates: start: 20120201
  3. HUMIRA [Suspect]

REACTIONS (9)
  - DIZZINESS [None]
  - DEAFNESS UNILATERAL [None]
  - MENTAL IMPAIRMENT [None]
  - BLOOD GLUCOSE INCREASED [None]
  - BONE PAIN [None]
  - TINNITUS [None]
  - FEELING ABNORMAL [None]
  - JOINT STIFFNESS [None]
  - MUSCULOSKELETAL STIFFNESS [None]
